FAERS Safety Report 25403884 (Version 1)
Quarter: 2025Q2

REPORT INFORMATION
  Report Type: Report from Study
  Country: CA (occurrence: CA)
  Receive Date: 20250606
  Receipt Date: 20250606
  Transmission Date: 20250717
  Serious: Yes (Other)
  Sender: Alvotech
  Company Number: CA-JAMP PHARMA CORPORATION-2025-JAM-CA-00896

PATIENT
  Age: 76 Year
  Sex: Female
  Weight: 83 kg

DRUGS (3)
  1. USTEKINUMAB [Suspect]
     Active Substance: USTEKINUMAB
     Indication: Psoriatic arthropathy
     Dosage: 45 MILLIGRAM, EVERY 10 WEEKS
     Route: 058
  2. USTEKINUMAB [Suspect]
     Active Substance: USTEKINUMAB
     Indication: Psoriatic arthropathy
     Dosage: 45 MILLIGRAM, EVERY 8 WEEKS
     Route: 058
     Dates: start: 20250403
  3. USTEKINUMAB [Suspect]
     Active Substance: USTEKINUMAB
     Indication: Psoriatic arthropathy
     Dosage: 45 MILLIGRAM, EVERY 12 WEEKS
     Route: 058
     Dates: start: 20241217

REACTIONS (2)
  - Psoriatic arthropathy [Not Recovered/Not Resolved]
  - Off label use [Unknown]
